FAERS Safety Report 7692817-5 (Version None)
Quarter: 2011Q3

REPORT INFORMATION
  Report Type: 
  Country: None (occurrence: None)
  Receive Date: 20110819
  Receipt Date: 20110817
  Transmission Date: 20111222
  Serious: Yes (Death, Hospitalization, Other)
  Sender: FDA-Public Use
  Company Number: US-ELI_LILLY_AND_COMPANY-US201104002745

PATIENT
  Sex: Male

DRUGS (8)
  1. BYETTA [Suspect]
  2. POTASSIUM CHLORIDE [Concomitant]
  3. GLYBURIDE AND METFORMIN HYDROCHLORIDE [Concomitant]
  4. EFFEXOR [Concomitant]
  5. ASCORBIC ACID [Concomitant]
  6. TRICOR [Concomitant]
  7. HYDROCHLOROTHIAZIDE [Concomitant]
  8. LISINOPRIL [Concomitant]

REACTIONS (1)
  - PANCREATITIS ACUTE [None]
